FAERS Safety Report 4334789-7 (Version None)
Quarter: 2004Q2

REPORT INFORMATION
  Report Type: 
  Country: None (occurrence: None)
  Receive Date: 20040407
  Receipt Date: 20040407
  Transmission Date: 20050107
  Serious: Yes (Hospitalization)
  Sender: FDA-Public Use
  Company Number: None

PATIENT
  Sex: Female

DRUGS (5)
  1. ENOXAPARIN SODIUM [Suspect]
     Indication: DEEP VEIN THROMBOSIS
     Dosage: 45 MG SC X 1
     Route: 058
     Dates: start: 20031204
  2. NIFEDIPINE [Concomitant]
  3. ATORVASTATIN [Concomitant]
  4. DOCUSATE [Concomitant]
  5. RANITIDINE [Concomitant]

REACTIONS (2)
  - HAEMATEMESIS [None]
  - INTERNATIONAL NORMALISED RATIO DECREASED [None]
